FAERS Safety Report 7613474-X (Version None)
Quarter: 2011Q3

REPORT INFORMATION
  Report Type: 
  Country: None (occurrence: None)
  Receive Date: 20110708
  Receipt Date: 20110629
  Transmission Date: 20111222
  Serious: Yes (Other)
  Sender: FDA-Public Use
  Company Number: GB-ACCORD-005823

PATIENT
  Age: 52 Year
  Sex: Female

DRUGS (10)
  1. FAMOTIDINE [Concomitant]
  2. METOPROLOL TARTRATE [Concomitant]
  3. SIROLIMUS (RAPAMUNE) [Suspect]
     Indication: IMMUNOSUPPRESSION
  4. HYDRALAZINE HCL [Concomitant]
  5. BASILIXIMAB(BASILIXIMAB) [Suspect]
     Indication: PRODUCT USED FOR UNKNOWN INDICATION
  6. TRIMETHOPRIM [Concomitant]
  7. VALGANCICLOVIR HCL [Concomitant]
  8. MYCOPHENOLATE MOFETIL [Suspect]
     Indication: IMMUNOSUPPRESSION
     Dosage: 500.00-MG-2.00 TIMES PER-1.0DAYS
  9. SIMVASTATIN [Concomitant]
  10. TACROLIMUS [Suspect]
     Indication: IMMUNOSUPPRESSION

REACTIONS (5)
  - BLOOD ALKALINE PHOSPHATASE INCREASED [None]
  - BLOOD PARATHYROID HORMONE INCREASED [None]
  - FOOT FRACTURE [None]
  - BLOOD CALCIUM INCREASED [None]
  - BONE MARROW OEDEMA [None]
